FAERS Safety Report 4516224-9 (Version None)
Quarter: 2004Q4

REPORT INFORMATION
  Report Type: 
  Country: None (occurrence: None)
  Receive Date: 20041005
  Receipt Date: 20031015
  Transmission Date: 20050328
  Serious: Yes (Other)
  Sender: FDA-Public Use
  Company Number: US-JNJFOC-20030706262

PATIENT
  Age: 12 Year
  Sex: Male
  Weight: 43.0917 kg

DRUGS (3)
  1. CONCERTA [Suspect]
     Indication: ATTENTION DEFICIT/HYPERACTIVITY DISORDER
     Dosage: 54 MG, 1 IN 1 DAY
     Dates: start: 20010501, end: 20030701
  2. CONCERTA [Suspect]
     Indication: PERVASIVE DEVELOPMENTAL DISORDER
     Dosage: 54 MG, 1 IN 1 DAY
     Dates: start: 20010501, end: 20030701
  3. IMIPRAMINE [Concomitant]

REACTIONS (1)
  - CONVULSION [None]
